FAERS Safety Report 18125602 (Version 1)
Quarter: 2020Q3

REPORT INFORMATION
  Report Type: Spontaneous
  Country: US (occurrence: US)
  Receive Date: 20200807
  Receipt Date: 20200807
  Transmission Date: 20201103
  Serious: No
  Sender: FDA-Public Use
  Company Number: US-ROCHE-2415918

PATIENT
  Age: 81 Year
  Sex: Female
  Weight: 112.46 kg

DRUGS (6)
  1. PERJETA [Suspect]
     Active Substance: PERTUZUMAB
     Indication: BREAST CANCER
     Route: 065
     Dates: start: 20190913
  2. HERCEPTIN [Suspect]
     Active Substance: TRASTUZUMAB
     Indication: BREAST CANCER
     Dosage: HERCEPTIN 8 MG/KG (907 MG)
     Route: 065
     Dates: start: 20190913
  3. TAXOTERE [Concomitant]
     Active Substance: DOCETAXEL
     Indication: BREAST CANCER
     Dates: start: 20190913
  4. DECADRON [Concomitant]
     Active Substance: DEXAMETHASONE
     Dates: start: 20190913
  5. PEPCID [Concomitant]
     Active Substance: FAMOTIDINE
     Dates: start: 20190913
  6. BENADRYL [Concomitant]
     Active Substance: DIPHENHYDRAMINE HYDROCHLORIDE
     Dates: start: 20190913

REACTIONS (2)
  - Infusion related reaction [Unknown]
  - Chills [Recovered/Resolved]

NARRATIVE: CASE EVENT DATE: 20190913
